FAERS Safety Report 22263802 (Version 1)
Quarter: 2023Q2

REPORT INFORMATION
  Report Type: Other
  Country: CN (occurrence: None)
  Receive Date: 20230428
  Receipt Date: 20230428
  Transmission Date: 20230722
  Serious: Yes (Other)
  Sender: FDA-Public Use
  Company Number: CN-ROCHE-3338690

PATIENT

DRUGS (6)
  1. TRASTUZUMAB [Suspect]
     Active Substance: TRASTUZUMAB
     Indication: HER2 positive breast cancer
     Dosage: (SPECIFICATION: 440 MG: 20 ML), THE DRUG WAS COMPLETED WITHIN 1.5 HOURS,
     Route: 041
  2. TRASTUZUMAB [Suspect]
     Active Substance: TRASTUZUMAB
     Dosage: (SPECIFICATION: 440 MG: 20 ML) THE PATIENT CONTINUED TO USE THE DRUG FOR 4 COURSES
     Route: 041
  3. PERTUZUMAB [Suspect]
     Active Substance: PERTUZUMAB
     Indication: HER2 positive breast cancer
     Dosage: (SPECIFICATION: 420 MG (14 ML)/VIAL), THE DRUG WAS DISSOLVED IN 0.9% SODIUM CHLORIDE SOLUTION AND AD
     Route: 041
  4. PERTUZUMAB [Suspect]
     Active Substance: PERTUZUMAB
     Dosage: (SPECIFICATION: 420 MG (14 ML)/VIAL)
     Route: 041
  5. PACLITAXEL [Suspect]
     Active Substance: PACLITAXEL
     Indication: HER2 positive breast cancer
     Dosage: (SPECIFICATION: 5 ML: 30 MG) DISSOLVED IN 500 ML SODIUM CHLORIDE INJECTION WITH A CONCENTRATION OF 0
     Route: 041
  6. CARBOPLATIN [Suspect]
     Active Substance: CARBOPLATIN
     Indication: HER2 positive breast cancer
     Dosage: (10 ML: 100 MG), DISSOLVED IN 250 ML GLUCOSE INJECTION WITH A CONCENTRATION OF 5%.
     Route: 041

REACTIONS (1)
  - Cardiotoxicity [Unknown]
